FAERS Safety Report 6461486-4 (Version None)
Quarter: 2009Q4

REPORT INFORMATION
  Report Type: 
  Country: None (occurrence: None)
  Receive Date: 20091130
  Receipt Date: 20091125
  Transmission Date: 20100525
  Serious: Yes (Death, Hospitalization)
  Sender: FDA-Public Use
  Company Number: DE-ABBOTT-09P-062-0610527-00

PATIENT
  Sex: Male
  Weight: 63 kg

DRUGS (21)
  1. ZEMPLAR [Suspect]
     Indication: DRUG USE FOR UNKNOWN INDICATION
     Route: 042
     Dates: start: 20090608
  2. FERRLECIT [Concomitant]
     Indication: DRUG USE FOR UNKNOWN INDICATION
     Dosage: 20 MG PER WEEK
     Route: 042
     Dates: start: 20081107
  3. FERRLECIT [Concomitant]
     Dosage: 120 MG PER WEEK
     Route: 042
     Dates: start: 20090626, end: 20090715
  4. FERRLECIT [Concomitant]
     Dosage: 187.5MG PER WEEK
     Route: 042
     Dates: start: 20090715
  5. ROCALTROL [Concomitant]
     Indication: DRUG USE FOR UNKNOWN INDICATION
     Route: 048
     Dates: start: 20090519
  6. RETACRIT 8000IE/0.8ML [Concomitant]
     Indication: DRUG USE FOR UNKNOWN INDICATION
     Dosage: 48000IE PER WEEK
     Route: 042
     Dates: start: 20090420
  7. ASPIRIN [Concomitant]
     Indication: DRUG USE FOR UNKNOWN INDICATION
     Route: 048
     Dates: start: 20070706
  8. L-THYROXIN [Concomitant]
     Indication: DRUG USE FOR UNKNOWN INDICATION
     Route: 048
     Dates: start: 20060410
  9. CARENAL [Concomitant]
     Indication: DRUG USE FOR UNKNOWN INDICATION
     Route: 048
     Dates: start: 20070528
  10. DELIX [Concomitant]
     Indication: DRUG USE FOR UNKNOWN INDICATION
     Route: 048
     Dates: start: 20070706
  11. BISOPROLOL [Concomitant]
     Indication: DRUG USE FOR UNKNOWN INDICATION
     Route: 048
     Dates: start: 20080618
  12. OMEPRAZOLE [Concomitant]
     Indication: DRUG USE FOR UNKNOWN INDICATION
     Route: 048
     Dates: start: 20090422
  13. RENAGEL [Concomitant]
     Indication: DRUG USE FOR UNKNOWN INDICATION
     Route: 048
     Dates: start: 20090422
  14. MIMPARA [Concomitant]
     Indication: DRUG USE FOR UNKNOWN INDICATION
     Route: 048
     Dates: start: 20090420
  15. MIMPARA [Concomitant]
     Route: 048
     Dates: start: 20090420, end: 20090717
  16. PREDNI H [Concomitant]
     Indication: DRUG USE FOR UNKNOWN INDICATION
     Route: 048
     Dates: start: 20080707
  17. MCP [Concomitant]
     Indication: DRUG USE FOR UNKNOWN INDICATION
     Dosage: UP TO THREE TIMES 20 DROPS IF REQUIRED
     Route: 048
     Dates: start: 20080123
  18. RENILON 4.0 DRINK PACKS [Concomitant]
     Indication: DRUG USE FOR UNKNOWN INDICATION
     Route: 048
     Dates: start: 20080118
  19. METAMIZOL [Concomitant]
     Indication: DRUG USE FOR UNKNOWN INDICATION
     Dosage: 20 DROPS IF REQUIRED
     Route: 048
  20. DELIX [Concomitant]
     Route: 048
     Dates: start: 20090729
  21. MIMPARA [Concomitant]
     Route: 048
     Dates: start: 20090420, end: 20090717

REACTIONS (2)
  - ARTERIOVENOUS SHUNT OPERATION [None]
  - THROMBOSIS MESENTERIC VESSEL [None]
